FAERS Safety Report 9238431 (Version 1)
Quarter: 2013Q2

REPORT INFORMATION
  Report Type: Spontaneous
  Country: US (occurrence: None)
  Receive Date: 20130416
  Receipt Date: 20130416
  Transmission Date: 20140414
  Serious: Yes (Hospitalization)
  Sender: FDA-Public Use
  Company Number: SYM-2013-02876

PATIENT
  Age: 33 Year
  Sex: Female

DRUGS (1)
  1. XENAZINE [Suspect]
     Indication: HUNTINGTON^S DISEASE
     Dosage: 12.5 MG, 2 IN 1, ORAL
     Route: 048
     Dates: start: 201302

REACTIONS (5)
  - Blood pressure increased [None]
  - Heart rate increased [None]
  - Crying [None]
  - Emotional disorder [None]
  - No therapeutic response [None]
